FAERS Safety Report 20772565 (Version 1)
Quarter: 2022Q2

REPORT INFORMATION
  Report Type: Spontaneous
  Country: US (occurrence: US)
  Receive Date: 20220502
  Receipt Date: 20220502
  Transmission Date: 20220720
  Serious: No
  Sender: FDA-Public Use
  Company Number: US-drreddys-SPO/USA/22/0149421

PATIENT
  Age: 14 Year

DRUGS (1)
  1. ACCUTANE [Suspect]
     Active Substance: ISOTRETINOIN
     Indication: Product used for unknown indication
     Dosage: RMA ISSUE DATE:8 NOVEMBER 2021 12:00:00 AM, 15 DECEMBER 2021 08:23:27 AM, 2 FEBRUARY 2022 03:04:22 P

REACTIONS (1)
  - Treatment noncompliance [Unknown]
